FAERS Safety Report 18807068 (Version 1)
Quarter: 2021Q1

REPORT INFORMATION
  Report Type: Spontaneous
  Country: US (occurrence: US)
  Receive Date: 20210128
  Receipt Date: 20210128
  Transmission Date: 20210419
  Serious: Yes (Hospitalization)
  Sender: FDA-Public Use
  Company Number: None

PATIENT
  Age: 86 Year
  Sex: Male
  Weight: 75.6 kg

DRUGS (7)
  1. FLUTICASONE NASAL SPRAY [Concomitant]
     Active Substance: FLUTICASONE
     Dates: start: 20200830
  2. HCTZ/TRIAMTERENE 25/37.5 [Concomitant]
     Dates: start: 20201105
  3. OMEPRAZOLE 20 MG [Concomitant]
     Active Substance: OMEPRAZOLE
     Dates: start: 20200801
  4. APIXABAN 5 MG BID [Concomitant]
     Dates: start: 20201120
  5. CAPTOPRIL 100 MG DAILY [Concomitant]
     Dates: start: 20201022
  6. SIMVASTATIN 80 MG [Concomitant]
     Active Substance: SIMVASTATIN
     Dates: start: 20201009
  7. CASIRIVIMAB/IMDEVIMAB [Suspect]
     Active Substance: CASIRIVIMAB\IMDEVIMAB
     Indication: COVID-19
     Dosage: ?          OTHER FREQUENCY:ONCE;?
     Route: 041
     Dates: start: 20210126, end: 20210126

REACTIONS (15)
  - Dyspnoea [None]
  - Productive cough [None]
  - Sputum discoloured [None]
  - Fatigue [None]
  - Chills [None]
  - Dizziness [None]
  - Pyrexia [None]
  - Asthenia [None]
  - Fall [None]
  - Oxygen saturation decreased [None]
  - Cough [None]
  - Respiratory distress [None]
  - Cardio-respiratory arrest [None]
  - Gait disturbance [None]
  - Head injury [None]

NARRATIVE: CASE EVENT DATE: 20210126
